FAERS Safety Report 18665798 (Version 1)
Quarter: 2020Q4

REPORT INFORMATION
  Report Type: Spontaneous
  Country: FR (occurrence: FR)
  Receive Date: 20201226
  Receipt Date: 20201226
  Transmission Date: 20210114
  Serious: Yes (Hospitalization)
  Sender: FDA-Public Use
  Company Number: FR-TEVA-2020-FR-1861321

PATIENT
  Age: 63 Year
  Sex: Male

DRUGS (11)
  1. CYCLOPHOSPHAMIDE. [Suspect]
     Active Substance: CYCLOPHOSPHAMIDE
     Indication: CHRONIC LYMPHOCYTIC LEUKAEMIA
     Dosage: 600 MG
     Route: 042
     Dates: start: 20180926, end: 20180930
  2. ATRIANCE [Suspect]
     Active Substance: NELARABINE
     Indication: CHRONIC LYMPHOCYTIC LEUKAEMIA
     Dosage: 1300 MG
     Route: 042
     Dates: start: 20180926, end: 20180930
  3. ETOPOSIDE. [Suspect]
     Active Substance: ETOPOSIDE
     Indication: CHRONIC LYMPHOCYTIC LEUKAEMIA
     Dosage: 200 MG
     Route: 042
     Dates: start: 20180926, end: 20180930
  4. NOXAFIL [Suspect]
     Active Substance: POSACONAZOLE
     Indication: INFECTION PROPHYLAXIS
     Dosage: 300 MG X 2 / D FOR 2 DAYS THEN 300 MG / D
     Route: 048
     Dates: start: 20181005
  5. VIALEBEX [Concomitant]
     Active Substance: ALBUMIN HUMAN
  6. METHOTREXATE. [Suspect]
     Active Substance: METHOTREXATE
     Indication: LYMPHOMA
     Dosage: SEP-21, SEP-27, OCT-01, OCT-09 AND OCT-19
     Route: 037
     Dates: start: 20180921, end: 20181019
  7. VALACICLOVIR ARROW 500 MG, COMPRIME PELLICULE [Suspect]
     Active Substance: VALACYCLOVIR HYDROCHLORIDE
     Indication: HERPES SIMPLEX
     Dosage: 1000 MG
     Route: 048
     Dates: start: 20181005
  8. CORTANCYL [Suspect]
     Active Substance: PREDNISONE
     Indication: PROPHYLAXIS OF NAUSEA AND VOMITING
     Dosage: 120 MG / DAY AT A REGRESSIVE DOSE UP TO 40 MG / DAY
     Route: 048
     Dates: start: 20180921
  9. YDRALBUM [Concomitant]
     Active Substance: ALBUMIN HUMAN
  10. CYTARABINE. [Suspect]
     Active Substance: CYTARABINE
     Indication: CHRONIC LYMPHOCYTIC LEUKAEMIA
     Dosage: SEP-21, SEP-27, OCT-01, OCT-09 AND OCT-19
     Route: 037
     Dates: start: 20180921, end: 20181019
  11. ALLOPURINOL ARROW [Suspect]
     Active Substance: ALLOPURINOL
     Indication: TUMOUR LYSIS SYNDROME
     Dosage: 500 MG
     Route: 048
     Dates: start: 20180926

REACTIONS (2)
  - Oedema [Not Recovered/Not Resolved]
  - Neuropathy peripheral [Not Recovered/Not Resolved]

NARRATIVE: CASE EVENT DATE: 20181016
